FAERS Safety Report 19665147 (Version 2)
Quarter: 2022Q1

REPORT INFORMATION
  Report Type: Spontaneous
  Country: US (occurrence: US)
  Receive Date: 20210805
  Receipt Date: 20220126
  Transmission Date: 20220423
  Serious: No
  Sender: FDA-Public Use
  Company Number: US-BEH-2021134681

PATIENT
  Age: 60 Year
  Sex: Male

DRUGS (1)
  1. HIZENTRA [Suspect]
     Active Substance: HUMAN IMMUNOGLOBULIN G
     Dosage: UNK
     Route: 065
     Dates: start: 2020

REACTIONS (7)
  - Infusion site discolouration [Recovered/Resolved]
  - Infusion site erythema [Unknown]
  - Infusion site bruising [Not Recovered/Not Resolved]
  - Infusion site nodule [Not Recovered/Not Resolved]
  - Infusion site erythema [Unknown]
  - Infusion site discolouration [Unknown]
  - Infusion site urticaria [Unknown]
